FAERS Safety Report 21698345 (Version 1)
Quarter: 2022Q4

REPORT INFORMATION
  Report Type: Report from Study
  Country: US (occurrence: US)
  Receive Date: 20221208
  Receipt Date: 20221208
  Transmission Date: 20230113
  Serious: Yes (Hospitalization, Other)
  Sender: FDA-Public Use
  Company Number: US-BRISTOL-MYERS SQUIBB COMPANY-2022-147334

PATIENT
  Age: 73 Year
  Sex: Female
  Weight: 74.2 kg

DRUGS (2)
  1. AZACITIDINE [Suspect]
     Active Substance: AZACITIDINE
     Indication: Acute myeloid leukaemia
     Dosage: 145 MG CYCLIC (DAILY FOR 7 DAYS, EVERY 4 WEEKS)
     Route: 065
     Dates: start: 20220903
  2. MAPLIRPACEPT [Suspect]
     Active Substance: MAPLIRPACEPT
     Indication: Acute myeloid leukaemia
     Dosage: ONCE
     Route: 042
     Dates: start: 20220903

REACTIONS (1)
  - Enterocolitis infectious [Not Recovered/Not Resolved]

NARRATIVE: CASE EVENT DATE: 20221119
